FAERS Safety Report 19473428 (Version 1)
Quarter: 2021Q2

REPORT INFORMATION
  Report Type: Spontaneous
  Country: DE (occurrence: DE)
  Receive Date: 20210629
  Receipt Date: 20210629
  Transmission Date: 20210717
  Serious: Yes (Other)
  Sender: FDA-Public Use
  Company Number: NVSC2021DE139643

PATIENT
  Sex: Male

DRUGS (1)
  1. MAYZENT [Suspect]
     Active Substance: SIPONIMOD
     Indication: PRODUCT USED FOR UNKNOWN INDICATION
     Dosage: 2 MG, QD
     Route: 065
     Dates: start: 202105

REACTIONS (4)
  - Oral herpes [Recovered/Resolved]
  - White blood cell count decreased [Unknown]
  - Lymphocyte count decreased [Unknown]
  - Fungal infection [Recovered/Resolved]

NARRATIVE: CASE EVENT DATE: 2021
